FAERS Safety Report 13113866 (Version 3)
Quarter: 2017Q3

REPORT INFORMATION
  Report Type: Spontaneous
  Country: US (occurrence: US)
  Receive Date: 20170113
  Receipt Date: 20170926
  Transmission Date: 20171127
  Serious: No
  Sender: FDA-Public Use
  Company Number: US-LUNDBECK-DKLU2020700

PATIENT
  Sex: Female

DRUGS (2)
  1. NORTHERA [Suspect]
     Active Substance: DROXIDOPA
     Route: 065
  2. NORTHERA [Suspect]
     Active Substance: DROXIDOPA
     Indication: PRODUCT USED FOR UNKNOWN INDICATION
     Route: 065
     Dates: start: 20170308

REACTIONS (15)
  - Dysphagia [Unknown]
  - Fall [Unknown]
  - Headache [Unknown]
  - Vomiting [Unknown]
  - Vision blurred [Unknown]
  - Tongue disorder [Unknown]
  - Asthenia [Unknown]
  - Pruritus [Unknown]
  - Nausea [Unknown]
  - Hypoaesthesia [Unknown]
  - Nipple pain [Unknown]
  - Fatigue [Unknown]
  - Dizziness [Unknown]
  - Dyspnoea [Unknown]
  - Hypotension [Unknown]
